FAERS Safety Report 7283179-6 (Version None)
Quarter: 2011Q1

REPORT INFORMATION
  Report Type: 
  Country: None (occurrence: None)
  Receive Date: 20110204
  Receipt Date: 20110204
  Transmission Date: 20110831
  Serious: Yes (Death)
  Sender: FDA-Public Use
  Company Number: None

PATIENT
  Age: 66 Year
  Sex: Female
  Weight: 59.1 kg

DRUGS (1)
  1. DEXAMETHASONE [Suspect]
     Indication: METASTASES TO CENTRAL NERVOUS SYSTEM
     Dosage: 4 MG 2 A DAY ORALLY
     Route: 048
     Dates: start: 20101115, end: 20101203

REACTIONS (2)
  - MUSCLE ATROPHY [None]
  - PAIN [None]
